FAERS Safety Report 16662600 (Version 2)
Quarter: 2020Q1

REPORT INFORMATION
  Report Type: Spontaneous
  Country: US (occurrence: US)
  Receive Date: 20190802
  Receipt Date: 20200129
  Transmission Date: 20200409
  Serious: No
  Sender: FDA-Public Use
  Company Number: US-EXELIXIS-CABO-19018871

PATIENT
  Sex: Male

DRUGS (1)
  1. CABOMETYX [Suspect]
     Active Substance: CABOZANTINIB S-MALATE
     Indication: PRODUCT USED FOR UNKNOWN INDICATION
     Dosage: UNK

REACTIONS (4)
  - Cardiac disorder [Unknown]
  - Palmar-plantar erythrodysaesthesia syndrome [Unknown]
  - Gastrointestinal tract irritation [Unknown]
  - Skin ulcer [Unknown]

NARRATIVE: CASE EVENT DATE: 201902
